FAERS Safety Report 4916654-7 (Version None)
Quarter: 2006Q1

REPORT INFORMATION
  Report Type: 
  Country: None (occurrence: None)
  Receive Date: 20060220
  Receipt Date: 20060209
  Transmission Date: 20060701
  Serious: Yes (Other)
  Sender: FDA-Public Use
  Company Number: 2006PK00343

PATIENT
  Age: 21 Year
  Sex: Male
  Weight: 90 kg

DRUGS (4)
  1. SEROQUEL [Suspect]
     Route: 048
  2. RISPERIDONE [Suspect]
     Route: 048
  3. PIPAMPERONE [Suspect]
     Route: 048
  4. DOXEPIN [Suspect]
     Route: 048

REACTIONS (1)
  - DRUG ABUSER [None]
